FAERS Safety Report 24272219 (Version 2)
Quarter: 2024Q3

REPORT INFORMATION
  Report Type: Spontaneous
  Country: US (occurrence: US)
  Receive Date: 20240902
  Receipt Date: 20240919
  Transmission Date: 20241016
  Serious: Yes (Hospitalization, Other)
  Sender: ABBVIE
  Company Number: US-ABBVIE-5899011

PATIENT
  Age: 29 Year
  Sex: Male
  Weight: 61 kg

DRUGS (5)
  1. TEFLARO [Suspect]
     Active Substance: CEFTAROLINE FOSAMIL
     Indication: Staphylococcal bacteraemia
     Dosage: FORM STRENGTH: 600 MILLIGRAMS
     Route: 042
     Dates: start: 20240808, end: 20240822
  2. TEFLARO [Suspect]
     Active Substance: CEFTAROLINE FOSAMIL
     Indication: Staphylococcal bacteraemia
     Route: 042
  3. TEFLARO [Suspect]
     Active Substance: CEFTAROLINE FOSAMIL
     Indication: Staphylococcal bacteraemia
     Route: 042
  4. TEFLARO [Suspect]
     Active Substance: CEFTAROLINE FOSAMIL
     Indication: Staphylococcal bacteraemia
     Route: 042
  5. DAPTOMYCIN [Concomitant]
     Active Substance: DAPTOMYCIN
     Indication: Product used for unknown indication

REACTIONS (5)
  - Drug-induced liver injury [Recovering/Resolving]
  - Alanine aminotransferase increased [Recovering/Resolving]
  - Aspartate aminotransferase increased [Recovering/Resolving]
  - Blood alkaline phosphatase increased [Recovering/Resolving]
  - Hepatomegaly [Unknown]

NARRATIVE: CASE EVENT DATE: 20240801
